FAERS Safety Report 4427891-2 (Version None)
Quarter: 2004Q3

REPORT INFORMATION
  Report Type: 
  Country: None (occurrence: None)
  Receive Date: 20040813
  Receipt Date: 20040806
  Transmission Date: 20050211
  Serious: Yes (Hospitalization)
  Sender: FDA-Public Use
  Company Number: TPA2004A00962

PATIENT
  Age: 73 Year
  Sex: Male
  Weight: 104.3273 kg

DRUGS (11)
  1. ACTOS [Suspect]
     Indication: DIABETES MELLITUS NON-INSULIN-DEPENDENT
     Dosage: 30 MG, 1 IN 1 D, PER ORAL
     Route: 048
     Dates: start: 19980301
  2. CAPTOPRIL [Concomitant]
  3. ALBUTEROL NEBULIZER (SALBUTAMOL) [Concomitant]
  4. LANOXIN [Concomitant]
  5. SPIRIVA (OTHER RESPIRATORY SYSTEM PRODUCTS) [Concomitant]
  6. GLYBURIDE [Concomitant]
  7. SEREVENT DISKUS (SALMETEROL XINAFOATE) [Concomitant]
  8. TERAZOSIN (TERAZOSIN) [Concomitant]
  9. FLAXSEED OIL (LINSEED OIL) [Concomitant]
  10. ZOCOR [Concomitant]
  11. ASPIRIN [Concomitant]

REACTIONS (3)
  - LUNG NEOPLASM MALIGNANT [None]
  - OEDEMA PERIPHERAL [None]
  - WEIGHT INCREASED [None]
